FAERS Safety Report 8457504-4 (Version None)
Quarter: 2012Q2

REPORT INFORMATION
  Report Type: 
  Country: None (occurrence: None)
  Receive Date: 20120622
  Receipt Date: 20120608
  Transmission Date: 20120825
  Serious: Yes (Death)
  Sender: FDA-Public Use
  Company Number: CO-AMGEN-COLSP2011065612

PATIENT
  Age: 1 Day

DRUGS (2)
  1. ENBREL [Suspect]
     Dosage: 50 MG, WEEKLY
     Route: 064
     Dates: start: 20101101, end: 20110729
  2. MAGNESIUM [Concomitant]
     Indication: HOMEOPATHY
     Dosage: UNK

REACTIONS (2)
  - CHORIOAMNIONITIS [None]
  - MATERNAL EXPOSURE TIMING UNSPECIFIED [None]
